FAERS Safety Report 8088404 (Version 2)
Quarter: 2013Q1

REPORT INFORMATION
  Report Type: Spontaneous
  Country: PL (occurrence: PL)
  Receive Date: 20110812
  Receipt Date: 20130318
  Transmission Date: 20140127
  Serious: Yes (Other)
  Sender: FDA-Public Use
  Company Number: PL-BAXTER-2011BH025233

PATIENT
  Age: 0 Year
  Sex: Female
  Weight: 10 kg

DRUGS (3)
  1. KIOVIG [Suspect]
     Indication: PRODUCT USED FOR UNKNOWN INDICATION
     Route: 042
     Dates: start: 20110801, end: 20110801
  2. BIOTAKSYM [Concomitant]
     Indication: PRODUCT USED FOR UNKNOWN INDICATION
     Route: 042
  3. VANCOMYCIN [Concomitant]
     Indication: PRODUCT USED FOR UNKNOWN INDICATION
     Route: 042

REACTIONS (4)
  - Heart rate decreased [Recovered/Resolved]
  - Chills [Recovered/Resolved]
  - Cyanosis [Recovered/Resolved]
  - Peripheral coldness [Recovered/Resolved]
